FAERS Safety Report 21574758 (Version 7)
Quarter: 2022Q4

REPORT INFORMATION
  Report Type: Spontaneous
  Country: PL (occurrence: PL)
  Receive Date: 20221109
  Receipt Date: 20221124
  Transmission Date: 20230112
  Serious: Yes (Hospitalization, Other)
  Sender: FDA-Public Use
  Company Number: PL-BRISTOL-MYERS SQUIBB COMPANY-2022-123067

PATIENT
  Age: 60 Year
  Sex: Male

DRUGS (36)
  1. APIXABAN [Suspect]
     Active Substance: APIXABAN
     Indication: Cardiac failure chronic
     Route: 065
  2. APIXABAN [Suspect]
     Active Substance: APIXABAN
     Route: 065
  3. APIXABAN [Suspect]
     Active Substance: APIXABAN
     Route: 065
  4. APIXABAN [Suspect]
     Active Substance: APIXABAN
     Route: 065
  5. APIXABAN [Suspect]
     Active Substance: APIXABAN
     Dosage: 2.5 MG, QD
     Route: 065
  6. APIXABAN [Suspect]
     Active Substance: APIXABAN
     Route: 065
  7. APIXABAN [Suspect]
     Active Substance: APIXABAN
     Route: 065
  8. APIXABAN [Suspect]
     Active Substance: APIXABAN
     Route: 065
  9. APIXABAN [Suspect]
     Active Substance: APIXABAN
     Route: 065
  10. APIXABAN [Suspect]
     Active Substance: APIXABAN
     Route: 065
  11. APIXABAN [Suspect]
     Active Substance: APIXABAN
     Route: 065
  12. APIXABAN [Suspect]
     Active Substance: APIXABAN
     Route: 065
  13. APIXABAN [Suspect]
     Active Substance: APIXABAN
     Route: 065
  14. FUROSEMIDE [Suspect]
     Active Substance: FUROSEMIDE
     Indication: Cardiac failure chronic
     Dosage: 20-40 MG
     Route: 065
  15. RAMIPRIL [Suspect]
     Active Substance: RAMIPRIL
     Indication: Cardiac failure chronic
     Route: 065
  16. RAMIPRIL [Suspect]
     Active Substance: RAMIPRIL
     Route: 065
  17. RAMIPRIL [Suspect]
     Active Substance: RAMIPRIL
     Dosage: 2.5 G DAILY / 2.5 MG DAILY / 20 MG DAILY
     Route: 065
  18. RAMIPRIL [Suspect]
     Active Substance: RAMIPRIL
     Route: 065
  19. TORSEMIDE [Suspect]
     Active Substance: TORSEMIDE
     Indication: Cardiac failure chronic
     Route: 065
  20. BISOPROLOL FUMARATE [Suspect]
     Active Substance: BISOPROLOL FUMARATE
     Indication: Cardiac failure chronic
     Route: 065
  21. BISOPROLOL FUMARATE [Suspect]
     Active Substance: BISOPROLOL FUMARATE
     Route: 065
  22. ASPIRIN [Suspect]
     Active Substance: ASPIRIN
     Indication: Cardiac failure chronic
     Route: 065
  23. ASPIRIN [Suspect]
     Active Substance: ASPIRIN
  24. CLOPIDOGREL [Suspect]
     Active Substance: CLOPIDOGREL BISULFATE
     Indication: Cardiac failure chronic
     Dosage: 75 MG, QD
     Route: 065
  25. FUROSEMIDE [Suspect]
     Active Substance: FUROSEMIDE
     Indication: Cardiac failure chronic
     Dosage: UNK (20-40MG)
     Route: 065
  26. PANTOPRAZOLE SODIUM [Suspect]
     Active Substance: PANTOPRAZOLE SODIUM
     Indication: Cardiac failure chronic
     Route: 065
  27. PANTOPRAZOLE SODIUM [Suspect]
     Active Substance: PANTOPRAZOLE SODIUM
     Route: 065
  28. CLOPIDOGREL BESILATE [Suspect]
     Active Substance: CLOPIDOGREL BESILATE
     Indication: Cardiac failure chronic
     Route: 065
  29. CLOPIDOGREL BESILATE [Suspect]
     Active Substance: CLOPIDOGREL BESILATE
     Indication: Cardiac failure chronic
  30. ROSUVASTATIN CALCIUM [Suspect]
     Active Substance: ROSUVASTATIN CALCIUM
     Indication: Cardiac failure chronic
     Route: 048
  31. CLOPIDOGREL BISULFATE [Suspect]
     Active Substance: CLOPIDOGREL BISULFATE
     Indication: Cardiac failure chronic
     Route: 065
  32. VALSARTAN [Suspect]
     Active Substance: VALSARTAN
     Indication: Product used for unknown indication
     Route: 065
  33. ROSUVASTATIN [Suspect]
     Active Substance: ROSUVASTATIN
     Indication: Cardiac failure chronic
     Route: 048
  34. SACUBITRIL [Suspect]
     Active Substance: SACUBITRIL
     Indication: Product used for unknown indication
     Dosage: UNK
     Route: 065
  35. ENTRESTO [Concomitant]
     Active Substance: SACUBITRIL\VALSARTAN
     Indication: Product used for unknown indication
     Dosage: 24/26 MG
     Route: 065
  36. ENTRESTO [Concomitant]
     Active Substance: SACUBITRIL\VALSARTAN
     Dosage: 49/51 MG
     Route: 065

REACTIONS (7)
  - Off label use [Unknown]
  - Atrial fibrillation [Unknown]
  - Myocardial infarction [Unknown]
  - Dyslipidaemia [Unknown]
  - Cardiac failure [Recovering/Resolving]
  - Cardiac failure chronic [Unknown]
  - Drug abuse [Unknown]

NARRATIVE: CASE EVENT DATE: 20201001
